FAERS Safety Report 25022773 (Version 1)
Quarter: 2025Q1

REPORT INFORMATION
  Report Type: Report from Study
  Country: CN (occurrence: CN)
  Receive Date: 20250228
  Receipt Date: 20250228
  Transmission Date: 20250409
  Serious: Yes (Other)
  Sender: ROCHE
  Company Number: CN-ROCHE-10000213039

PATIENT

DRUGS (9)
  1. BEVACIZUMAB [Suspect]
     Active Substance: BEVACIZUMAB
     Indication: Non-small cell lung cancer stage IV
     Route: 065
  2. ALECTINIB [Suspect]
     Active Substance: ALECTINIB
     Indication: Non-small cell lung cancer stage IV
     Route: 065
  3. CERITINIB [Suspect]
     Active Substance: CERITINIB
     Indication: Non-small cell lung cancer stage IV
     Route: 065
  4. OSIMERTINIB [Suspect]
     Active Substance: OSIMERTINIB
     Indication: Non-small cell lung cancer stage IV
     Route: 065
  5. CRIZOTINIB [Suspect]
     Active Substance: CRIZOTINIB
     Indication: Non-small cell lung cancer stage IV
     Route: 065
  6. LORLATINIB [Suspect]
     Active Substance: LORLATINIB
     Indication: Non-small cell lung cancer stage IV
     Route: 065
  7. BRIGATINIB [Suspect]
     Active Substance: BRIGATINIB
     Indication: Non-small cell lung cancer stage IV
     Route: 065
  8. AMIVANTAMAB [Suspect]
     Active Substance: AMIVANTAMAB
     Indication: Non-small cell lung cancer stage IV
     Route: 065
  9. VATALANIB [Suspect]
     Active Substance: VATALANIB
     Indication: Non-small cell lung cancer stage IV
     Route: 065

REACTIONS (19)
  - Cardiac failure [Unknown]
  - Myocardial ischaemia [Unknown]
  - Cardiotoxicity [Unknown]
  - Hypertension [Unknown]
  - Tachycardia [Unknown]
  - Electrocardiogram QT prolonged [Unknown]
  - Ejection fraction decreased [Unknown]
  - Atrial fibrillation [Unknown]
  - Pericarditis [Unknown]
  - Pericardial effusion [Unknown]
  - Endocarditis noninfective [Unknown]
  - Atrioventricular block complete [Unknown]
  - Acute myocardial infarction [Unknown]
  - Embolic stroke [Unknown]
  - Bradycardia [Unknown]
  - Nausea [Unknown]
  - Skin toxicity [Unknown]
  - Diarrhoea [Unknown]
  - Fatigue [Unknown]
